FAERS Safety Report 4367094-3 (Version None)
Quarter: 2004Q2

REPORT INFORMATION
  Report Type: 
  Country: None (occurrence: None)
  Receive Date: 20040528
  Receipt Date: 20040521
  Transmission Date: 20050107
  Serious: Yes (Other)
  Sender: FDA-Public Use
  Company Number: GB-MERCK-0405GBR00168

PATIENT
  Age: 56 Year
  Sex: Female

DRUGS (5)
  1. COD LIVER OIL [Concomitant]
     Route: 048
     Dates: start: 19990101
  2. EVENING PRIMROSE OIL [Concomitant]
     Route: 048
     Dates: start: 19990101
  3. LEVOTHYROXINE SODIUM [Concomitant]
     Indication: HYPOTHYROIDISM
     Route: 048
     Dates: start: 19970101
  4. VIOXX [Suspect]
     Indication: INFLAMMATION
     Route: 048
     Dates: start: 20040430, end: 20040505
  5. VIOXX [Suspect]
     Indication: PAIN
     Route: 048
     Dates: start: 20040430, end: 20040505

REACTIONS (5)
  - ANXIETY [None]
  - DIZZINESS [None]
  - DRY THROAT [None]
  - HEADACHE [None]
  - NAUSEA [None]
